FAERS Safety Report 25001477 (Version 1)
Quarter: 2025Q1

REPORT INFORMATION
  Report Type: Report from Study
  Country: US (occurrence: US)
  Receive Date: 20250223
  Receipt Date: 20250223
  Transmission Date: 20250409
  Serious: Yes (Other)
  Sender: JOHNSON AND JOHNSON
  Company Number: US-JNJFOC-20250236785

PATIENT
  Age: 39 Year
  Sex: Female

DRUGS (2)
  1. SPRAVATO [Suspect]
     Active Substance: ESKETAMINE
     Indication: Depression
     Route: 045
     Dates: start: 20250212, end: 20250217
  2. SPRAVATO [Suspect]
     Active Substance: ESKETAMINE
     Indication: Major depression
     Route: 045
     Dates: start: 20250210, end: 20250210

REACTIONS (10)
  - Syncope [Unknown]
  - Mental impairment [Unknown]
  - Dizziness [Unknown]
  - Nausea [Unknown]
  - Feeling abnormal [Unknown]
  - Anxiety [Unknown]
  - Movement disorder [Unknown]
  - Taste disorder [Unknown]
  - Panic disorder [Unknown]
  - Depression [Unknown]

NARRATIVE: CASE EVENT DATE: 20250201
